FAERS Safety Report 17040465 (Version 2)
Quarter: 2020Q4

REPORT INFORMATION
  Report Type: Report from Study
  Country: US (occurrence: US)
  Receive Date: 20191117
  Receipt Date: 20201109
  Transmission Date: 20210113
  Serious: Yes (Hospitalization, Other)
  Sender: FDA-Public Use
  Company Number: US-UCBSA-2019047467

PATIENT
  Age: 32 Year
  Sex: Male

DRUGS (10)
  1. LEVETIRACETAM. [Suspect]
     Active Substance: LEVETIRACETAM
     Dosage: 1500 MILLIGRAM, 2X/DAY (BID)
     Route: 048
  2. DEPAKOTE [Concomitant]
     Active Substance: DIVALPROEX SODIUM
     Indication: SEIZURE
     Dosage: 500 MG AM/ 750 MG PM
  3. VIMPAT [Suspect]
     Active Substance: LACOSAMIDE
     Indication: SEIZURE
     Dosage: 100MG
  4. LEVETIRACETAM. [Suspect]
     Active Substance: LEVETIRACETAM
     Dosage: 1000 MILLIGRAM, 2X/DAY (BID)
     Route: 048
  5. DIVALPROEX [Concomitant]
     Active Substance: DIVALPROEX SODIUM
     Indication: PRODUCT USED FOR UNKNOWN INDICATION
  6. LEVETIRACETAM. [Suspect]
     Active Substance: LEVETIRACETAM
     Indication: SEIZURE
     Dosage: UNK
     Route: 048
     Dates: start: 2016
  7. GABAPENTIN. [Suspect]
     Active Substance: GABAPENTIN
     Indication: PAIN
  8. TESTOSTERONE. [Concomitant]
     Active Substance: TESTOSTERONE
     Indication: PRODUCT USED FOR UNKNOWN INDICATION
  9. VIMPAT [Suspect]
     Active Substance: LACOSAMIDE
     Dosage: VIMPAT 200 1 TABLET BID
  10. DARVOCET [Concomitant]
     Active Substance: ACETAMINOPHEN\PROPOXYPHENE HYDROCHLORIDE
     Indication: SWELLING

REACTIONS (17)
  - Nausea [Unknown]
  - Mood swings [Unknown]
  - Seizure [Unknown]
  - Syncope [Unknown]
  - Wrong product administered [Unknown]
  - Neck pain [Unknown]
  - Inability to afford medication [Unknown]
  - Subdural haematoma [Unknown]
  - Road traffic accident [Unknown]
  - Joint dislocation [Unknown]
  - Facial bones fracture [Unknown]
  - Hand fracture [Unknown]
  - Disorientation [Unknown]
  - Agitation [Unknown]
  - Generalised tonic-clonic seizure [Unknown]
  - Therapy interrupted [Unknown]
  - Poisoning [Unknown]

NARRATIVE: CASE EVENT DATE: 20161130
